FAERS Safety Report 17252824 (Version 2)
Quarter: 2020Q2

REPORT INFORMATION
  Report Type: Spontaneous
  Country: US (occurrence: US)
  Receive Date: 20200109
  Receipt Date: 20200422
  Transmission Date: 20200713
  Serious: Yes (Hospitalization)
  Sender: FDA-Public Use
  Company Number: US-JNJFOC-20200109935

PATIENT
  Age: 77 Year
  Sex: Male
  Weight: 79.45 kg

DRUGS (1)
  1. ZYTIGA [Suspect]
     Active Substance: ABIRATERONE ACETATE
     Indication: PRODUCT USED FOR UNKNOWN INDICATION
     Dosage: 250 MG X 4 TABLETS
     Route: 048

REACTIONS (3)
  - Femur fracture [Recovered/Resolved]
  - Bone cancer [Unknown]
  - Weight increased [Unknown]

NARRATIVE: CASE EVENT DATE: 20200103
